FAERS Safety Report 9461190 (Version 1)
Quarter: 2013Q3

REPORT INFORMATION
  Report Type: Spontaneous
  Country: US (occurrence: None)
  Receive Date: 20130814
  Receipt Date: 20130814
  Transmission Date: 20140515
  Serious: Yes (Other)
  Sender: FDA-Public Use
  Company Number: None

PATIENT
  Age: 67 Year
  Sex: Male
  Weight: 82 kg

DRUGS (1)
  1. SILDENAFIL [Suspect]
     Indication: ERECTILE DYSFUNCTION
     Dosage: WEEKLY DURING JUNE, 2013
     Route: 048
     Dates: start: 201306

REACTIONS (4)
  - Headache [None]
  - Eye movement disorder [None]
  - Diplopia [None]
  - IIIrd nerve paralysis [None]
